FAERS Safety Report 17407394 (Version 1)
Quarter: 2020Q1

REPORT INFORMATION
  Report Type: Spontaneous
  Country: AR (occurrence: AR)
  Receive Date: 20200212
  Receipt Date: 20200212
  Transmission Date: 20200409
  Serious: Yes (Other)
  Sender: FDA-Public Use
  Company Number: AR-BAYER-2020-021625

PATIENT
  Sex: Female

DRUGS (2)
  1. LEVONORGESTREL IUS [UNKNOWN] [Suspect]
     Active Substance: LEVONORGESTREL
     Dosage: 20?G PER DAY CONT
     Route: 015
  2. LEVONORGESTREL IUS [UNKNOWN] [Suspect]
     Active Substance: LEVONORGESTREL
     Dosage: 20?G PER DAY CONT
     Route: 015

REACTIONS (4)
  - Procedural pain [None]
  - Ovarian cyst [None]
  - Uterine leiomyoma [Recovered/Resolved]
  - Device use issue [None]
